FAERS Safety Report 10219373 (Version 2)
Quarter: 2014Q2

REPORT INFORMATION
  Report Type: Spontaneous
  Country: BR (occurrence: BR)
  Receive Date: 20140605
  Receipt Date: 20140605
  Transmission Date: 20141212
  Serious: Yes (Hospitalization)
  Sender: FDA-Public Use
  Company Number: BR-DSJP-DSJ-2014-108736

PATIENT
  Sex: 0

DRUGS (1)
  1. BENICAR [Suspect]
     Indication: HYPERTENSION
     Dosage: 20 MG, QD
     Route: 048
     Dates: start: 201402, end: 20140508

REACTIONS (7)
  - Cerebrovascular accident [Not Recovered/Not Resolved]
  - Nervousness [Recovered/Resolved]
  - Blood pressure increased [Unknown]
  - Drug administration error [Unknown]
  - Erythema [Unknown]
  - Tachycardia [Unknown]
  - Malaise [Unknown]
